FAERS Safety Report 7028588 (Version 4)
Quarter: 2015Q1

REPORT INFORMATION
  Report Type: Spontaneous
  Country: JP (occurrence: JP)
  Receive Date: 20090619
  Receipt Date: 20150122
  Transmission Date: 20150721
  Serious: Yes (Death, Hospitalization)
  Sender: FDA-Public Use
  Company Number: PHHY2009JP18710

PATIENT
  Age: 81 Year
  Sex: Female

DRUGS (5)
  1. GLIVEC [Suspect]
     Active Substance: IMATINIB MESYLATE
     Dosage: 400 MG, UNK
     Route: 048
     Dates: start: 20090226, end: 20090313
  2. ALDACTONE [Concomitant]
     Active Substance: SPIRONOLACTONE
     Indication: PRODUCT USED FOR UNKNOWN INDICATION
     Route: 048
  3. LASIX [Concomitant]
     Active Substance: FUROSEMIDE
     Indication: PRODUCT USED FOR UNKNOWN INDICATION
     Route: 048
  4. GLIVEC [Suspect]
     Active Substance: IMATINIB MESYLATE
     Indication: CHRONIC MYELOID LEUKAEMIA
     Dosage: 300 MG, QD
     Route: 048
     Dates: start: 20090213, end: 20090225
  5. LENDORMIN [Concomitant]
     Active Substance: BROTIZOLAM
     Indication: PRODUCT USED FOR UNKNOWN INDICATION
     Route: 048

REACTIONS (12)
  - Abdominal pain [Fatal]
  - Disseminated intravascular coagulation [Recovered/Resolved]
  - Inflammation [Fatal]
  - Sepsis [Recovered/Resolved]
  - Hepatic function abnormal [Fatal]
  - Peritonitis [Unknown]
  - Ascites [Unknown]
  - Colonic fistula [Fatal]
  - Large intestinal haemorrhage [Fatal]
  - Large intestine perforation [Fatal]
  - Abdominal pain lower [Fatal]
  - Abscess [Unknown]

NARRATIVE: CASE EVENT DATE: 20090313
